FAERS Safety Report 17722939 (Version 5)
Quarter: 2020Q4

REPORT INFORMATION
  Report Type: Other
  Country: FR (occurrence: FR)
  Receive Date: 20200429
  Receipt Date: 20201201
  Transmission Date: 20210113
  Serious: Yes (Hospitalization)
  Sender: FDA-Public Use
  Company Number: FR-ROCHE-2411648

PATIENT
  Age: 51 Year
  Sex: Female
  Weight: 42 kg

DRUGS (9)
  1. SOLUPRED (FRANCE) [Concomitant]
     Active Substance: PREDNISOLONE SODIUM METAZOATE
     Dates: start: 20190613, end: 20190703
  2. TRAMADOL. [Concomitant]
     Active Substance: TRAMADOL
     Dates: start: 20190703, end: 201910
  3. ATEZOLIZUMAB. [Suspect]
     Active Substance: ATEZOLIZUMAB
     Indication: NON-SMALL CELL LUNG CANCER
     Dosage: ON 07/MAY/2019, SHE RECEIVED THE MOST RECENT DOSE (1200 MG) OF ATEZOLIZUMAB PRIOR TO AE (ADVERSE EVE
     Route: 042
  4. ATEZOLIZUMAB. [Suspect]
     Active Substance: ATEZOLIZUMAB
     Route: 042
     Dates: start: 20190418
  5. ATEZOLIZUMAB. [Suspect]
     Active Substance: ATEZOLIZUMAB
     Route: 042
     Dates: start: 20190507
  6. ATEZOLIZUMAB. [Suspect]
     Active Substance: ATEZOLIZUMAB
     Route: 042
     Dates: start: 20190519
  7. INNOHEP [Concomitant]
     Active Substance: TINZAPARIN SODIUM
  8. PROFENID [Concomitant]
     Active Substance: KETOPROFEN
     Dates: start: 20190529, end: 20190613
  9. POLARAMINE [Concomitant]
     Active Substance: DEXCHLORPHENIRAMINE MALEATE
     Dates: start: 20190703, end: 20191007

REACTIONS (3)
  - Hepatocellular injury [Recovering/Resolving]
  - Septic shock [Recovered/Resolved]
  - Hyperthyroidism [Not Recovered/Not Resolved]

NARRATIVE: CASE EVENT DATE: 20190504
